FAERS Safety Report 16113801 (Version 1)
Quarter: 2019Q1

REPORT INFORMATION
  Report Type: Spontaneous
  Country: US (occurrence: US)
  Receive Date: 20190325
  Receipt Date: 20190325
  Transmission Date: 20190418
  Serious: No
  Sender: FDA-Public Use
  Company Number: US-ALLERGAN-1835743US

PATIENT
  Sex: Female

DRUGS (1)
  1. LUMIGAN [Suspect]
     Active Substance: BIMATOPROST
     Indication: PRODUCT USED FOR UNKNOWN INDICATION
     Dosage: 2 GTT, QPM
     Route: 047
     Dates: start: 201804

REACTIONS (3)
  - Nausea [Not Recovered/Not Resolved]
  - Diarrhoea [Unknown]
  - Angina pectoris [Unknown]

NARRATIVE: CASE EVENT DATE: 201806
